FAERS Safety Report 13411808 (Version 2)
Quarter: 2017Q4

REPORT INFORMATION
  Report Type: Spontaneous
  Country: US (occurrence: US)
  Receive Date: 20170406
  Receipt Date: 20171123
  Transmission Date: 20180320
  Serious: No
  Sender: FDA-Public Use
  Company Number: US-JNJFOC-20170304256

PATIENT
  Age: 13 Year
  Sex: Male

DRUGS (6)
  1. RISPERIDONE. [Suspect]
     Active Substance: RISPERIDONE
     Indication: ATTENTION DEFICIT/HYPERACTIVITY DISORDER
     Dosage: HALF TABLET TWICE A DAY.
     Route: 048
     Dates: start: 20090102, end: 20090128
  2. RISPERIDONE. [Suspect]
     Active Substance: RISPERIDONE
     Indication: ATTENTION DEFICIT/HYPERACTIVITY DISORDER
     Dosage: HALF TABLET TWICE A DAY.
     Route: 048
     Dates: start: 20080805, end: 20081031
  3. RISPERDAL [Suspect]
     Active Substance: RISPERIDONE
     Indication: AGGRESSION
     Dosage: IN VARYING DOSES OF 2 MG AND 3 MG OF VARYING FREQUENCY
     Route: 048
     Dates: start: 20060714, end: 20070511
  4. RISPERDAL [Suspect]
     Active Substance: RISPERIDONE
     Indication: ATTENTION DEFICIT/HYPERACTIVITY DISORDER
     Dosage: IN VARYING DOSES OF 2 MG AND 3 MG OF VARYING FREQUENCY
     Route: 048
     Dates: start: 20060714, end: 20070511
  5. RISPERDAL [Suspect]
     Active Substance: RISPERIDONE
     Indication: AGGRESSION
     Dosage: IN VARYING DOSES OF 2 MG, 3 MG AND 4 MG OF VARYING FREQUENCY
     Route: 048
     Dates: start: 20071102, end: 20110104
  6. RISPERDAL [Suspect]
     Active Substance: RISPERIDONE
     Indication: ATTENTION DEFICIT/HYPERACTIVITY DISORDER
     Dosage: IN VARYING DOSES OF 2 MG, 3 MG AND 4 MG OF VARYING FREQUENCY
     Route: 048
     Dates: start: 20071102, end: 20110104

REACTIONS (4)
  - Product use in unapproved indication [Unknown]
  - Off label use [Unknown]
  - Emotional disorder [Unknown]
  - Gynaecomastia [Unknown]

NARRATIVE: CASE EVENT DATE: 20080805
